FAERS Safety Report 22071485 (Version 1)
Quarter: 2023Q1

REPORT INFORMATION
  Report Type: Spontaneous
  Country: US (occurrence: US)
  Receive Date: 20230307
  Receipt Date: 20230307
  Transmission Date: 20230417
  Serious: Yes (Hospitalization, Other)
  Sender: FDA-Public Use
  Company Number: US-PFIZER INC-202300091885

PATIENT
  Age: 48 Year
  Sex: Female
  Weight: 86.64 kg

DRUGS (1)
  1. PAXLOVID [Suspect]
     Active Substance: NIRMATRELVIR\RITONAVIR
     Indication: COVID-19 treatment
     Dosage: UNK, 2X/DAY (TOOK A COUPLE OF PILLS AT ONCE TWICE A DAY)

REACTIONS (11)
  - Visual impairment [Not Recovered/Not Resolved]
  - Syncope [Unknown]
  - Papilloedema [Not Recovered/Not Resolved]
  - Idiopathic intracranial hypertension [Unknown]
  - Pain [Unknown]
  - Inflammation [Unknown]
  - Disturbance in attention [Unknown]
  - Cerebral disorder [Unknown]
  - Malaise [Unknown]
  - Condition aggravated [Unknown]
  - Memory impairment [Unknown]
